FAERS Safety Report 25153834 (Version 1)
Quarter: 2025Q2

REPORT INFORMATION
  Report Type: Spontaneous
  Country: PR (occurrence: PR)
  Receive Date: 20250403
  Receipt Date: 20250403
  Transmission Date: 20250717
  Serious: No
  Sender: JOHNSON AND JOHNSON
  Company Number: PR-JNJFOC-20250320877

PATIENT

DRUGS (1)
  1. APALUTAMIDE [Suspect]
     Active Substance: APALUTAMIDE
     Indication: Product used for unknown indication
     Route: 048

REACTIONS (1)
  - Throat irritation [Unknown]
